FAERS Safety Report 8210479-5 (Version None)
Quarter: 2012Q1

REPORT INFORMATION
  Report Type: 
  Country: None (occurrence: None)
  Receive Date: 20120314
  Receipt Date: 20120207
  Transmission Date: 20120608
  Serious: No
  Sender: FDA-Public Use
  Company Number: US-ASTRAZENECA-2010SE15260

PATIENT
  Age: 79 Year
  Sex: Female

DRUGS (2)
  1. CRESTOR [Suspect]
     Route: 048
  2. TOPROL-XL [Suspect]
     Route: 048

REACTIONS (7)
  - WRONG DRUG ADMINISTERED [None]
  - KIDNEY INFECTION [None]
  - HYPERTENSION [None]
  - BRONCHITIS [None]
  - CYSTITIS [None]
  - EXPIRED DRUG ADMINISTERED [None]
  - DRUG DOSE OMISSION [None]
